FAERS Safety Report 10219755 (Version 1)
Quarter: 2014Q2

REPORT INFORMATION
  Report Type: Report from Study
  Country: CA (occurrence: ES)
  Receive Date: 20140605
  Receipt Date: 20140605
  Transmission Date: 20141212
  Serious: Yes (Other)
  Sender: FDA-Public Use
  Company Number: ES-B.I. PHARMACEUTICALS,INC./RIDGEFIELD-2014-BI-24967GD

PATIENT
  Age: 71 Year
  Sex: Male

DRUGS (3)
  1. CATAPRES [Suspect]
     Indication: ISCHAEMIC HEART DISEASE PROPHYLAXIS
     Dosage: 0.2 MG
     Route: 048
     Dates: start: 20121022, end: 20121022
  2. CATAPRESAN TTS [Suspect]
     Indication: ISCHAEMIC HEART DISEASE PROPHYLAXIS
     Dosage: 0.2 MG
     Route: 062
     Dates: start: 20121022, end: 20121023
  3. ENALAPRIL [Suspect]
     Indication: PRODUCT USED FOR UNKNOWN INDICATION
     Dosage: 20 MG
     Route: 065

REACTIONS (1)
  - Procedural hypotension [Unknown]
